FAERS Safety Report 15826600 (Version 5)
Quarter: 2020Q1

REPORT INFORMATION
  Report Type: Spontaneous
  Country: US (occurrence: US)
  Receive Date: 20190115
  Receipt Date: 20200124
  Transmission Date: 20200409
  Serious: No
  Sender: FDA-Public Use
  Company Number: US-PFIZER INC-2019016172

PATIENT
  Age: 1 Year
  Sex: Female

DRUGS (6)
  1. GENOTROPIN [Suspect]
     Active Substance: SOMATROPIN
     Indication: SEPTO-OPTIC DYSPLASIA
     Dosage: 0.4 MG, DAILY
     Dates: start: 20170204
  2. GENOTROPIN [Suspect]
     Active Substance: SOMATROPIN
     Indication: BRAIN INJURY
  3. GENOTROPIN [Suspect]
     Active Substance: SOMATROPIN
     Indication: GROWTH HORMONE DEFICIENCY
     Dosage: 0.4 MG, DAILY
     Route: 058
     Dates: start: 201702
  4. GENOTROPIN [Suspect]
     Active Substance: SOMATROPIN
     Indication: VISUAL AGNOSIA
  5. GENOTROPIN [Suspect]
     Active Substance: SOMATROPIN
     Indication: HYPOPITUITARISM
  6. GENOTROPIN [Suspect]
     Active Substance: SOMATROPIN
     Indication: DEVELOPMENTAL DELAY

REACTIONS (13)
  - Insulin-like growth factor decreased [Unknown]
  - White blood cells urine positive [Unknown]
  - Blood urine present [Unknown]
  - Thyroxine free increased [Unknown]
  - Specific gravity urine decreased [Unknown]
  - Blood glucose increased [Unknown]
  - Viral rash [Unknown]
  - Urine ketone body present [Unknown]
  - Globulins decreased [Unknown]
  - Blood osmolarity decreased [Unknown]
  - Urine abnormality [Unknown]
  - Protein urine present [Unknown]
  - Urine osmolarity decreased [Unknown]

NARRATIVE: CASE EVENT DATE: 20180928
